FAERS Safety Report 25207534 (Version 2)
Quarter: 2025Q2

REPORT INFORMATION
  Report Type: Spontaneous
  Country: GR (occurrence: GR)
  Receive Date: 20250417
  Receipt Date: 20250429
  Transmission Date: 20250716
  Serious: Yes (Hospitalization)
  Sender: BOEHRINGER INGELHEIM
  Company Number: GR-BoehringerIngelheim-2025-BI-021448

PATIENT
  Age: 79 Year
  Sex: Male

DRUGS (2)
  1. DABIGATRAN [Suspect]
     Active Substance: DABIGATRAN
     Indication: Atrial fibrillation
  2. ABIRATERONE ACETATE;cortisol [Concomitant]
     Indication: Product used for unknown indication

REACTIONS (5)
  - Haematuria [Recovered/Resolved]
  - Lymphadenopathy [Unknown]
  - Acute kidney injury [Recovered/Resolved]
  - Full blood count decreased [Recovered/Resolved]
  - Abdominal discomfort [Recovered/Resolved]
